FAERS Safety Report 24120201 (Version 2)
Quarter: 2024Q3

REPORT INFORMATION
  Report Type: Spontaneous
  Country: FR (occurrence: FR)
  Receive Date: 20240722
  Receipt Date: 20240805
  Transmission Date: 20241016
  Serious: Yes (Hospitalization)
  Sender: FRESENIUS KABI
  Company Number: FR-ROCHE-3578100

PATIENT
  Age: 60 Year
  Sex: Male

DRUGS (3)
  1. PACLITAXEL [Suspect]
     Active Substance: PACLITAXEL
     Indication: Lung neoplasm malignant
     Dosage: DATE OF LAST ADMINISTRATION OF STUDY TREATMENT 17-JUN-2024?FORM OF ADMIN: INFUSION
     Route: 042
     Dates: start: 20240527
  2. BEVACIZUMAB [Suspect]
     Active Substance: BEVACIZUMAB
     Indication: Lung neoplasm malignant
     Dosage: DATE OF LAST ADMINISTRATION OF STUDY TREATMENT 17-JUN-2024?SOLUTION FOR INFUSION
     Route: 042
     Dates: start: 20240527
  3. PIPERACILLIN SODIUM\TAZOBACTAM SODIUM [Concomitant]
     Active Substance: PIPERACILLIN SODIUM\TAZOBACTAM SODIUM
     Indication: Product used for unknown indication
     Dosage: STARTED ON 29-JUN-2024.

REACTIONS (5)
  - Device related infection [Recovered/Resolved with Sequelae]
  - Pneumonia [Recovered/Resolved]
  - Bronchitis [Recovered/Resolved]
  - Hyperthermia [Recovered/Resolved]
  - General physical health deterioration [Not Recovered/Not Resolved]

NARRATIVE: CASE EVENT DATE: 20240603
